FAERS Safety Report 19997398 (Version 2)
Quarter: 2021Q4

REPORT INFORMATION
  Report Type: Spontaneous
  Country: FR (occurrence: FR)
  Receive Date: 20211026
  Receipt Date: 20211027
  Transmission Date: 20220303
  Serious: Yes (Death)
  Sender: FDA-Public Use
  Company Number: None

PATIENT
  Age: 50 Year
  Sex: Male

DRUGS (9)
  1. LYRICA [Suspect]
     Active Substance: PREGABALIN
     Indication: Pain
     Dosage: 150 MG, 1X/DAY
     Route: 048
     Dates: end: 20210928
  2. ALPRAZOLAM [Suspect]
     Active Substance: ALPRAZOLAM
     Indication: Anxiety
     Dosage: 0.25 MG, 1X/DAY
     Route: 048
     Dates: end: 20210928
  3. LANSOPRAZOLE [Suspect]
     Active Substance: LANSOPRAZOLE
     Indication: Prophylaxis
     Dosage: 15 MG, 1X/DAY
     Route: 048
     Dates: end: 20210928
  4. SOTORASIB [Suspect]
     Active Substance: SOTORASIB
     Indication: Lung adenocarcinoma stage IV
     Dosage: 960 MG, 1X/DAY
     Route: 048
     Dates: start: 20210922, end: 20210928
  5. BISOPROLOL FUMARATE [Suspect]
     Active Substance: BISOPROLOL FUMARATE
     Dosage: 2.5 MG, 1X/DAY
     Route: 048
     Dates: end: 20210928
  6. MORPHINE [Suspect]
     Active Substance: MORPHINE
     Indication: Pain
     Dosage: UNK
     Route: 065
  7. INNOHEP [Suspect]
     Active Substance: TINZAPARIN SODIUM
     Indication: Pulmonary embolism
     Dosage: 11000 IU, 1X/DAY
     Route: 058
     Dates: start: 202105, end: 20210928
  8. BACTRIM [Suspect]
     Active Substance: SULFAMETHOXAZOLE\TRIMETHOPRIM
     Indication: Prophylaxis
     Dosage: 1 DF, 1X/DAY
     Route: 048
     Dates: end: 20211001
  9. PREDNISONE [Suspect]
     Active Substance: PREDNISONE
     Indication: Lung adenocarcinoma stage IV
     Dosage: 40 MG, 1X/DAY
     Route: 048
     Dates: end: 202109

REACTIONS (1)
  - Acute respiratory distress syndrome [Fatal]

NARRATIVE: CASE EVENT DATE: 20210928
